FAERS Safety Report 18162455 (Version 1)
Quarter: 2020Q3

REPORT INFORMATION
  Report Type: Spontaneous
  Country: US (occurrence: US)
  Receive Date: 20200818
  Receipt Date: 20200818
  Transmission Date: 20201103
  Serious: Yes (Life-Threatening, Hospitalization, Disabling)
  Sender: FDA-Public Use
  Company Number: None

PATIENT
  Age: 73 Year
  Sex: Male
  Weight: 115.67 kg

DRUGS (1)
  1. KEYTRUDA [Suspect]
     Active Substance: PEMBROLIZUMAB
     Indication: SKIN CANCER
     Dosage: ?          QUANTITY:1 DOSE AT ONCOLOG;?
     Dates: start: 20200129, end: 20200129

REACTIONS (19)
  - Cardiac disorder [None]
  - Multi-organ disorder [None]
  - Bladder disorder [None]
  - Urinary incontinence [None]
  - Anal incontinence [None]
  - Musculoskeletal disorder [None]
  - Heart rate increased [None]
  - Gastrointestinal disorder [None]
  - Pneumonia [None]
  - Renal disorder [None]
  - Dialysis [None]
  - Immune system disorder [None]
  - Lung disorder [None]
  - Dysstasia [None]
  - Urinary tract infection [None]
  - Dehydration [None]
  - Cardiac arrest [None]
  - Haemorrhage [None]
  - Gait inability [None]

NARRATIVE: CASE EVENT DATE: 20200129
